FAERS Safety Report 5046133-0 (Version None)
Quarter: 2006Q2

REPORT INFORMATION
  Report Type: 
  Country: None (occurrence: None)
  Receive Date: 20060629
  Receipt Date: 20060616
  Transmission Date: 20061013
  Serious: No
  Sender: FDA-Public Use
  Company Number: 2006BI006407

PATIENT
  Sex: Male

DRUGS (11)
  1. AVONEX [Suspect]
     Indication: MULTIPLE SCLEROSIS
     Dosage: 30 UG;QW;IM
     Route: 030
     Dates: start: 20050831
  2. XALATAN [Concomitant]
  3. COSOPT [Concomitant]
  4. INDOMETHACIN [Concomitant]
  5. LOTREL [Concomitant]
  6. PRED FORTE [Concomitant]
  7. ZOCOR [Concomitant]
  8. METROPROLOL [Concomitant]
  9. PLAVIX [Concomitant]
  10. TOPROL-XL [Concomitant]
  11. PAXIL [Concomitant]

REACTIONS (2)
  - AMNESIA [None]
  - STRESS [None]
